FAERS Safety Report 24869703 (Version 1)
Quarter: 2025Q1

REPORT INFORMATION
  Report Type: Spontaneous
  Country: NL (occurrence: NL)
  Receive Date: 20250121
  Receipt Date: 20250121
  Transmission Date: 20250409
  Serious: Yes (Hospitalization)
  Sender: MYLAN
  Company Number: None

PATIENT
  Age: 52 Year
  Sex: Male
  Weight: 99 kg

DRUGS (1)
  1. EPLERENONE [Suspect]
     Active Substance: EPLERENONE
     Indication: Primary hyperaldosteronism
     Dosage: 25 MILLIGRAM, BID (1 PIECE TWICE DAILY)
     Route: 048
     Dates: start: 20241217

REACTIONS (1)
  - Pulmonary embolism [Not Recovered/Not Resolved]
